FAERS Safety Report 13125552 (Version 1)
Quarter: 2017Q1

REPORT INFORMATION
  Report Type: Report from Study
  Country: US (occurrence: US)
  Receive Date: 20170118
  Receipt Date: 20170118
  Transmission Date: 20170428
  Serious: Yes (Hospitalization, Other)
  Sender: FDA-Public Use
  Company Number: US-TAKEDA-2017MPI000270

PATIENT
  Age: 79 Year
  Sex: Male

DRUGS (3)
  1. DOXORUBICIN [Suspect]
     Active Substance: DOXORUBICIN
     Indication: TRANSITIONAL CELL CANCER OF THE RENAL PELVIS AND URETER
     Dosage: 42 MG/M2, UNK
     Route: 065
     Dates: start: 20160818
  2. IXAZOMIB [Suspect]
     Active Substance: IXAZOMIB
     Indication: TRANSITIONAL CELL CANCER OF THE RENAL PELVIS AND URETER
     Dosage: 5.5 MG, UNK
     Route: 048
     Dates: start: 20160818
  3. GEMCITABINE [Suspect]
     Active Substance: GEMCITABINE\GEMCITABINE HYDROCHLORIDE
     Indication: TRANSITIONAL CELL CANCER OF THE RENAL PELVIS AND URETER
     Dosage: 756 MG/M2, UNK
     Route: 065
     Dates: start: 20160818

REACTIONS (1)
  - Neutropenic sepsis [Recovering/Resolving]

NARRATIVE: CASE EVENT DATE: 20170104
